FAERS Safety Report 5256723-8 (Version None)
Quarter: 2007Q1

REPORT INFORMATION
  Report Type: 
  Country: None (occurrence: None)
  Receive Date: 20070306
  Receipt Date: 20070222
  Transmission Date: 20070707
  Serious: Yes (Hospitalization, Other)
  Sender: FDA-Public Use
  Company Number: CH-PFIZER INC-2007014528

PATIENT
  Age: 54 Year
  Sex: Female

DRUGS (1)
  1. LITHIUM CARBONATE [Suspect]
     Dosage: TEXT:UNKNOWN

REACTIONS (8)
  - BACK PAIN [None]
  - HYPERKALAEMIA [None]
  - HYPERPARATHYROIDISM [None]
  - INTERVERTEBRAL DISC PROTRUSION [None]
  - NEPHROGENIC DIABETES INSIPIDUS [None]
  - RENAL FAILURE [None]
  - SOMNOLENCE [None]
  - STATUS EPILEPTICUS [None]
